FAERS Safety Report 20085194 (Version 2)
Quarter: 2021Q4

REPORT INFORMATION
  Report Type: Spontaneous
  Country: US (occurrence: US)
  Receive Date: 20211118
  Receipt Date: 20211118
  Transmission Date: 20220303
  Serious: No
  Sender: FDA-Public Use
  Company Number: US-JNJFOC-20211116323

PATIENT
  Age: 65 Year
  Sex: Female

DRUGS (4)
  1. TYLENOL [Suspect]
     Active Substance: ACETAMINOPHEN
     Indication: Pain
     Route: 065
     Dates: start: 202110
  2. COVID-19 VACCINE [Concomitant]
     Indication: Immunisation
     Dosage: DOSE NUMBER: 1
     Route: 065
     Dates: start: 20210405, end: 20210405
  3. COVID-19 VACCINE [Concomitant]
     Dosage: DOSE NUMBER: 2
     Route: 065
     Dates: start: 20210426, end: 20210426
  4. COVID-19 VACCINE [Concomitant]
     Dosage: DOSE NUMBER 3
     Route: 065
     Dates: start: 20211029

REACTIONS (1)
  - Therapeutic product effect incomplete [Unknown]

NARRATIVE: CASE EVENT DATE: 20211001
